FAERS Safety Report 24240941 (Version 1)
Quarter: 2024Q3

REPORT INFORMATION
  Report Type: Spontaneous
  Country: PL (occurrence: PL)
  Receive Date: 20240823
  Receipt Date: 20240823
  Transmission Date: 20241016
  Serious: Yes (Hospitalization)
  Sender: AUROBINDO
  Company Number: PL-ROCHE-3377680

PATIENT
  Age: 40 Year
  Sex: Male
  Weight: 75 kg

DRUGS (15)
  1. CARBOPLATIN [Suspect]
     Active Substance: CARBOPLATIN
     Indication: Small cell lung cancer extensive stage
     Dosage: 750 MILLIGRAM(3 WEEKS)ON 05/JUN/2023,30/JUN/2023, 28/JUL/2023 PATIENT HAD MOST RECENT DOSE OF CARBOP
     Route: 042
     Dates: start: 20230605
  2. ATEZOLIZUMAB [Suspect]
     Active Substance: ATEZOLIZUMAB
     Indication: Small cell lung cancer extensive stage
     Dosage: 1200 MILLIGRAM (3WEEK)(ON 05/JUN/2023, 30/JUN/2023, 28/JUL/2023 PATIENT HAD MOST RECENT DOSE OF ATEZ
     Route: 042
     Dates: start: 20230605
  3. ATEZOLIZUMAB [Suspect]
     Active Substance: ATEZOLIZUMAB
     Dosage: UNK
     Route: 042
  4. FENOTEROL HYDROBROMIDE\IPRATROPIUM BROMIDE [Concomitant]
     Active Substance: FENOTEROL HYDROBROMIDE\IPRATROPIUM BROMIDE
     Indication: Cough
     Dosage: UNK
     Route: 065
     Dates: start: 20230601, end: 20230608
  5. ENOXAPARIN SODIUM [Concomitant]
     Active Substance: ENOXAPARIN SODIUM
     Indication: Product used for unknown indication
     Dosage: UNK
     Route: 065
     Dates: start: 20230601
  6. ETOPOSIDE [Concomitant]
     Active Substance: ETOPOSIDE
     Indication: Small cell lung cancer extensive stage
     Dosage: 184 MILLIGRAM(ON 07/JUN/2023,02/JUL/2023, 30/JUL/2023 PATIENT HAD MOST RECENT DOSE OF 187 MG WAS ADM
     Route: 042
     Dates: start: 20230605
  7. ETOPOSIDE [Concomitant]
     Active Substance: ETOPOSIDE
     Dosage: 187 MILLIGRAM(ON 07/JUN/2023,02/JUL/2023, 30/JUL/2023 PATIENT HAD MOST RECENT DOSE OF 187 MG WAS ADM
     Route: 042
  8. NACL + GLUCOSE [Concomitant]
     Indication: Product used for unknown indication
     Dosage: UNK
     Route: 065
     Dates: start: 20230626, end: 20230703
  9. NACL + GLUCOSE [Concomitant]
     Dosage: UNK
     Route: 065
     Dates: start: 20230721, end: 20230802
  10. NACL + GLUCOSE [Concomitant]
     Dosage: UNK
     Route: 065
     Dates: start: 20230818, end: 20230825
  11. PEGFILGRASTIM [Concomitant]
     Active Substance: PEGFILGRASTIM
     Indication: Product used for unknown indication
     Dosage: 6 MILLIGRAM, ONCE A DAY(AS NECESSARY)
     Route: 042
     Dates: start: 20230608
  12. ONDANSETRON [Concomitant]
     Active Substance: ONDANSETRON
     Indication: Product used for unknown indication
     Dosage: UNK
     Route: 065
     Dates: start: 20230605
  13. OXYCODONE HYDROCHLORIDE [Concomitant]
     Active Substance: OXYCODONE HYDROCHLORIDE
     Indication: Chest pain
     Dosage: UNK
     Route: 065
     Dates: start: 20230517
  14. MORPHINE [Concomitant]
     Active Substance: MORPHINE
     Indication: Chest pain
     Dosage: UNK
     Route: 065
     Dates: start: 20230517
  15. Thiocodin [Concomitant]
     Indication: Cough
     Dosage: UNK
     Route: 065
     Dates: start: 20230601

REACTIONS (1)
  - Hyponatraemia [Not Recovered/Not Resolved]

NARRATIVE: CASE EVENT DATE: 20230626
